FAERS Safety Report 7766800-5 (Version None)
Quarter: 2011Q3

REPORT INFORMATION
  Report Type: 
  Country: None (occurrence: None)
  Receive Date: 20110922
  Receipt Date: 20101213
  Transmission Date: 20111222
  Serious: No
  Sender: FDA-Public Use
  Company Number: US-ASTRAZENECA-2010SE59188

PATIENT
  Age: 55 Year
  Sex: Male

DRUGS (5)
  1. DEPAKOTE [Concomitant]
     Indication: BIPOLAR DISORDER
  2. DEXTROSE [Concomitant]
  3. LIPITOR [Concomitant]
     Indication: HYPERCHOLESTEROLAEMIA
  4. SEROQUEL [Suspect]
     Indication: BIPOLAR DISORDER
     Route: 048
  5. SEROQUEL [Suspect]
     Indication: SLEEP DISORDER
     Route: 048

REACTIONS (1)
  - ROAD TRAFFIC ACCIDENT [None]
